FAERS Safety Report 14127510 (Version 1)
Quarter: 2017Q4

REPORT INFORMATION
  Report Type: Spontaneous
  Country: US (occurrence: US)
  Receive Date: 20171026
  Receipt Date: 20171026
  Transmission Date: 20180321
  Serious: Yes (Other)
  Sender: FDA-Public Use
  Company Number: US-BRISTOL-MYERS SQUIBB COMPANY-BMS-2017-094036

PATIENT
  Sex: Female

DRUGS (1)
  1. ELIQUIS [Suspect]
     Active Substance: APIXABAN
     Indication: PRODUCT USED FOR UNKNOWN INDICATION
     Route: 065
     Dates: start: 201706

REACTIONS (8)
  - Epigastric discomfort [Unknown]
  - Intervertebral disc protrusion [Unknown]
  - Bone pain [Unknown]
  - Muscular weakness [Unknown]
  - Dizziness [Unknown]
  - Arthropathy [Unknown]
  - Confusional state [Unknown]
  - Back pain [Unknown]
